FAERS Safety Report 23789825 (Version 1)
Quarter: 2024Q2

REPORT INFORMATION
  Report Type: Spontaneous
  Country: CN (occurrence: CN)
  Receive Date: 20240426
  Receipt Date: 20240426
  Transmission Date: 20240716
  Serious: Yes (Life-Threatening)
  Sender: FDA-Public Use
  Company Number: CN-FreseniusKabi-FK202406652

PATIENT
  Age: 70 Year
  Sex: Male
  Weight: 55 kg

DRUGS (3)
  1. PROPOFOL [Suspect]
     Active Substance: PROPOFOL
     Indication: General anaesthesia
     Dosage: FORM OF ADMIN: INJECTABLE EMULSION?ROUTE OF ADMIN: INTRAVENOUS (NOT OTHERWISE SPECIFIED) ( INT )
     Dates: start: 20240416, end: 20240416
  2. Remimazolam besylate for injection [Concomitant]
     Indication: General anaesthesia
     Dosage: ROA: INTRAVENOUS (NOT OTHERWISE SPECIFIED) ( INT )?DOSAGE: POWDER FOR INJECTION
     Dates: start: 20240416, end: 20240416
  3. Alfentanil Hydrochloride Injection [Concomitant]
     Indication: General anaesthesia
     Dosage: DOSAGE: INJECTION?ROA: INTRAVENOUS (NOT OTHERWISE SPECIFIED)
     Dates: start: 20240416, end: 20240416

REACTIONS (1)
  - Anaphylactic shock [Recovered/Resolved]

NARRATIVE: CASE EVENT DATE: 20240416
